FAERS Safety Report 18408573 (Version 1)
Quarter: 2020Q4

REPORT INFORMATION
  Report Type: Spontaneous
  Country: BR (occurrence: BR)
  Receive Date: 20201020
  Receipt Date: 20201020
  Transmission Date: 20210114
  Serious: Yes (Hospitalization)
  Sender: FDA-Public Use
  Company Number: BR-BIOMARINAP-BR-2020-132662

PATIENT
  Age: 7 Year
  Sex: Female
  Weight: 21.1 kg

DRUGS (1)
  1. NAGLAZYME [Suspect]
     Active Substance: GALSULFASE
     Indication: MUCOPOLYSACCHARIDOSIS VI
     Dosage: UNK, QW
     Route: 042

REACTIONS (11)
  - Blood glucose decreased [Recovering/Resolving]
  - Pericardial effusion [Recovering/Resolving]
  - Acute respiratory failure [Recovering/Resolving]
  - Headache [Recovering/Resolving]
  - Gait inability [Recovering/Resolving]
  - Somnolence [Recovering/Resolving]
  - Urinary tract infection [Recovering/Resolving]
  - Pyrexia [Recovering/Resolving]
  - Dry throat [Recovering/Resolving]
  - Cough [Recovering/Resolving]
  - Asthenia [Recovering/Resolving]

NARRATIVE: CASE EVENT DATE: 20200929
